FAERS Safety Report 13326706 (Version 12)
Quarter: 2017Q4

REPORT INFORMATION
  Report Type: Spontaneous
  Country: US (occurrence: US)
  Receive Date: 20170312
  Receipt Date: 20171031
  Transmission Date: 20180320
  Serious: No
  Sender: FDA-Public Use
  Company Number: PHEH2017US007362

PATIENT
  Sex: Female
  Weight: 99.77 kg

DRUGS (3)
  1. ZOFRAN [Suspect]
     Active Substance: ONDANSETRON HYDROCHLORIDE
     Indication: PRODUCT USED FOR UNKNOWN INDICATION
     Route: 048
  2. ONDANSETRON TEVA [Suspect]
     Active Substance: ONDANSETRON
     Indication: PRODUCT USED FOR UNKNOWN INDICATION
     Dosage: 4 MG, Q8H
     Route: 048
     Dates: start: 20130917
  3. ONDANSETRON [Suspect]
     Active Substance: ONDANSETRON
     Indication: VOMITING IN PREGNANCY
     Dosage: 4 MG, PRN
     Route: 065
     Dates: start: 2013, end: 2013

REACTIONS (29)
  - Abdominal pain [Unknown]
  - Headache [Unknown]
  - Hypertension [Unknown]
  - Back pain [Unknown]
  - Obesity [Unknown]
  - Emotional distress [Unknown]
  - Pain [Unknown]
  - Abdominal pain lower [Unknown]
  - Cholelithiasis [Unknown]
  - Dyspnoea [Unknown]
  - Anhedonia [Unknown]
  - Migraine [Unknown]
  - Cough [Unknown]
  - Fibromyalgia [Unknown]
  - Bronchospasm [Unknown]
  - Dizziness [Unknown]
  - Injury [Unknown]
  - Wheezing [Unknown]
  - Gastrooesophageal reflux disease [Unknown]
  - Diarrhoea [Unknown]
  - Osteoarthritis [Unknown]
  - Vitamin D deficiency [Unknown]
  - Anxiety [Unknown]
  - Pyrexia [Unknown]
  - Maternal exposure during pregnancy [Unknown]
  - Eczema [Unknown]
  - Chest pain [Unknown]
  - Product use in unapproved indication [Unknown]
  - Gastritis [Unknown]
